FAERS Safety Report 12160601 (Version 2)
Quarter: 2016Q2

REPORT INFORMATION
  Report Type: Report from Study
  Country: US (occurrence: US)
  Receive Date: 20160308
  Receipt Date: 20160620
  Transmission Date: 20160815
  Serious: No
  Sender: FDA-Public Use
  Company Number: US-THERATECHNOLOGIES, INC.-TH-2016-00019

PATIENT
  Age: 53 Year
  Sex: Female
  Weight: 75.82 kg

DRUGS (12)
  1. EGRIFTA [Suspect]
     Active Substance: TESAMORELIN
     Indication: CENTRAL OBESITY
     Dosage: 2 MILLIGRAM
     Route: 058
     Dates: start: 2015, end: 201601
  2. TRUVADA [Concomitant]
     Active Substance: EMTRICITABINE\TENOFOVIR DISOPROXIL FUMARATE
     Indication: HIV INFECTION
     Dosage: 1 DOSAGE FORMS
     Dates: start: 20160117
  3. PROZAC [Concomitant]
     Active Substance: FLUOXETINE HYDROCHLORIDE
     Indication: MENTAL DISORDER
     Dosage: 100 MILLIGRAM
     Dates: start: 2013, end: 201601
  4. PREZCOBIX [Concomitant]
     Active Substance: COBICISTAT\DARUNAVIR ETHANOLATE
     Indication: HIV INFECTION
     Dosage: 1 DOSAGE FORMS
     Dates: start: 20160117
  5. TRUVADA [Concomitant]
     Active Substance: EMTRICITABINE\TENOFOVIR DISOPROXIL FUMARATE
     Dosage: 1 DOSAGE FORMS
     Dates: start: 2009, end: 201601
  6. EGRIFTA [Suspect]
     Active Substance: TESAMORELIN
     Dosage: 2 MILLIGRAM
     Route: 058
     Dates: start: 20160117
  7. PRAZOSIN [Concomitant]
     Active Substance: PRAZOSIN
     Indication: MENTAL DISORDER
     Dosage: 1 DOSAGE FORMS
     Dates: start: 20160117
  8. PRAZOSIN [Concomitant]
     Active Substance: PRAZOSIN
     Dosage: 1 DOSAGE FORMS
     Dates: start: 2013, end: 201601
  9. PROZAC [Concomitant]
     Active Substance: FLUOXETINE HYDROCHLORIDE
     Dosage: 100 MILLIGRAM
     Dates: start: 20160117
  10. PREZCOBIX [Concomitant]
     Active Substance: COBICISTAT\DARUNAVIR ETHANOLATE
     Dosage: 1 DOSAGE FORMS
     Dates: start: 201512, end: 201601
  11. SEROQUEL [Concomitant]
     Active Substance: QUETIAPINE FUMARATE
     Indication: MENTAL DISORDER
     Dosage: 100 MILLIGRAM
     Dates: start: 20160117
  12. SEROQUEL [Concomitant]
     Active Substance: QUETIAPINE FUMARATE
     Dosage: 100 MILLIGRAM
     Dates: start: 2013, end: 201601

REACTIONS (1)
  - Muscle spasms [Recovered/Resolved]

NARRATIVE: CASE EVENT DATE: 201601
